FAERS Safety Report 23371550 (Version 1)
Quarter: 2024Q1

REPORT INFORMATION
  Report Type: Spontaneous
  Country: US (occurrence: None)
  Receive Date: 20240105
  Receipt Date: 20240105
  Transmission Date: 20240410
  Serious: Yes (Congenital Anomaly)
  Sender: FDA-Public Use
  Company Number: None

PATIENT
  Age: 33 Year
  Sex: Female
  Weight: 94.5 kg

DRUGS (6)
  1. OZEMPIC [Suspect]
     Active Substance: SEMAGLUTIDE
     Indication: Obesity
     Dates: start: 20220901, end: 20230107
  2. OZEMPIC [Suspect]
     Active Substance: SEMAGLUTIDE
     Indication: Glucose tolerance impaired
  3. SERTRALINE [Concomitant]
     Active Substance: SERTRALINE HYDROCHLORIDE
  4. METFORMIN [Concomitant]
     Active Substance: METFORMIN HYDROCHLORIDE
  5. OZEMPIC [Concomitant]
     Active Substance: SEMAGLUTIDE
  6. pre-natal [Concomitant]

REACTIONS (5)
  - Retrognathia [None]
  - Drug exposure before pregnancy [None]
  - Polyhydramnios [None]
  - Congenital multiplex arthrogryposis [None]
  - Feeding disorder [None]

NARRATIVE: CASE EVENT DATE: 20230823
